FAERS Safety Report 9557474 (Version 1)
Quarter: 2013Q3

REPORT INFORMATION
  Report Type: Report from Study
  Country: GB (occurrence: GB)
  Receive Date: 20130926
  Receipt Date: 20130926
  Transmission Date: 20140515
  Serious: Yes (Hospitalization)
  Sender: FDA-Public Use
  Company Number: GB-JNJFOC-20130914897

PATIENT
  Age: 59 Year
  Sex: Male
  Weight: 78.46 kg

DRUGS (9)
  1. XARELTO [Suspect]
     Indication: ATRIAL FIBRILLATION
     Route: 048
     Dates: start: 20130612
  2. XARELTO [Suspect]
     Indication: CEREBROVASCULAR ACCIDENT PROPHYLAXIS
     Route: 048
     Dates: start: 20130612
  3. SIMVASTATIN [Concomitant]
     Route: 065
     Dates: start: 20130216
  4. TILDIEM [Concomitant]
     Route: 065
     Dates: start: 20120705
  5. SODIUM VALPROATE [Concomitant]
     Route: 065
     Dates: start: 20120705
  6. OLANZAPINE [Concomitant]
     Route: 065
     Dates: start: 20120705
  7. BISOPROLOL [Concomitant]
     Route: 065
     Dates: start: 20120823
  8. DIGOXIN [Concomitant]
     Route: 065
     Dates: start: 20120823
  9. OMEPRAZOLE [Concomitant]
     Route: 065
     Dates: start: 20120719

REACTIONS (1)
  - Local swelling [Recovered/Resolved]
